FAERS Safety Report 24680291 (Version 3)
Quarter: 2025Q2

REPORT INFORMATION
  Report Type: Spontaneous
  Country: CZ (occurrence: CZ)
  Receive Date: 20241129
  Receipt Date: 20250407
  Transmission Date: 20250716
  Serious: Yes (Death, Other)
  Sender: NOVARTIS
  Company Number: CZ-002147023-NVSC2024CZ228335

PATIENT
  Age: 60 Year
  Sex: Male

DRUGS (1)
  1. KYMRIAH [Suspect]
     Active Substance: TISAGENLECLEUCEL
     Indication: Diffuse large B-cell lymphoma
     Route: 042
     Dates: start: 2022, end: 2022

REACTIONS (17)
  - Progressive multifocal leukoencephalopathy [Fatal]
  - JC virus infection [Fatal]
  - Pneumonia [Unknown]
  - Myocardial ischaemia [Not Recovered/Not Resolved]
  - Seizure [Unknown]
  - Hemiparesis [Unknown]
  - Clostridium colitis [Unknown]
  - Candida sepsis [Unknown]
  - Central nervous system lymphoma [Unknown]
  - Malignant neoplasm progression [Unknown]
  - Speech disorder [Unknown]
  - Confusional state [Unknown]
  - Atrophy [Unknown]
  - Electrocardiogram abnormal [Unknown]
  - Ischaemia [Unknown]
  - Blood immunoglobulin G decreased [Unknown]
  - Treatment failure [Unknown]

NARRATIVE: CASE EVENT DATE: 20240201
